FAERS Safety Report 8531845-4 (Version None)
Quarter: 2012Q3

REPORT INFORMATION
  Report Type: 
  Country: None (occurrence: None)
  Receive Date: 20120723
  Receipt Date: 20120716
  Transmission Date: 20120928
  Serious: Yes (Hospitalization)
  Sender: FDA-Public Use
  Company Number: US-ABBOTT-12P-163-0946082-00

PATIENT
  Sex: Female

DRUGS (3)
  1. SYNTHROID [Suspect]
     Indication: PRODUCT USED FOR UNKNOWN INDICATION
     Dosage: 150 MCG DAILY
  2. SYNTHROID [Suspect]
     Dosage: 125 MCG DAILY
  3. SYNTHROID [Suspect]
     Indication: THYROIDECTOMY
     Dosage: 175 MCG DAILY

REACTIONS (3)
  - BLOOD THYROID STIMULATING HORMONE DECREASED [None]
  - ATRIAL FIBRILLATION [None]
  - EXPIRED DRUG ADMINISTERED [None]
